FAERS Safety Report 17821376 (Version 1)
Quarter: 2020Q2

REPORT INFORMATION
  Report Type: Spontaneous
  Country: US (occurrence: US)
  Receive Date: 20200525
  Receipt Date: 20200525
  Transmission Date: 20200714
  Serious: Yes (Life-Threatening, Hospitalization, Other)
  Sender: FDA-Public Use
  Company Number: US-GLENMARK PHARMACEUTICALS-2020GMK047857

PATIENT
  Age: 66 Year
  Sex: Male

DRUGS (3)
  1. SEVELAMER HYDROCHLORIDE. [Suspect]
     Active Substance: SEVELAMER HYDROCHLORIDE
     Indication: HYPERPHOSPHATAEMIA
     Dosage: 800 MILLIGRAM, TID (INITAL DOSE)
     Route: 065
  2. SEVELAMER HYDROCHLORIDE. [Interacting]
     Active Substance: SEVELAMER HYDROCHLORIDE
     Dosage: 1600 MILLIGRAM, TID (INCREASED DOSE FROM 800 MG TO 1600 MG THREE TIMES DAILY)
     Route: 065
  3. KAYEXALATE [Interacting]
     Active Substance: SODIUM POLYSTYRENE SULFONATE
     Indication: HYPERKALAEMIA
     Dosage: 30 GRAM, SINGLE DOSE
     Route: 065

REACTIONS (7)
  - Oesophageal perforation [Unknown]
  - Drug interaction [Unknown]
  - Chronic respiratory failure [Unknown]
  - Pneumatosis [Unknown]
  - Intestinal ischaemia [Unknown]
  - Short-bowel syndrome [Unknown]
  - Renal failure [Unknown]
